FAERS Safety Report 4320388-X (Version None)
Quarter: 2004Q1

REPORT INFORMATION
  Report Type: 
  Country: None (occurrence: None)
  Receive Date: 20040319
  Receipt Date: 20040319
  Transmission Date: 20041129
  Serious: Yes (Disabling)
  Sender: FDA-Public Use
  Company Number: None

PATIENT
  Age: 65 Year
  Sex: Female
  Weight: 86.1834 kg

DRUGS (1)
  1. XALATAN [Suspect]
     Indication: GLAUCOMA
     Dosage: 1 DROP DAILY INTRAOCULAR
     Route: 031
     Dates: start: 20000101, end: 20040301

REACTIONS (2)
  - BLINDNESS [None]
  - PHARMACEUTICAL PRODUCT COMPLAINT [None]
